FAERS Safety Report 18570367 (Version 1)
Quarter: 2020Q4

REPORT INFORMATION
  Report Type: Report from Study
  Country: PL (occurrence: PL)
  Receive Date: 20201202
  Receipt Date: 20201202
  Transmission Date: 20210114
  Serious: Yes (Hospitalization)
  Sender: FDA-Public Use
  Company Number: PL-GW PHARMA-201808PLGW0308

PATIENT

DRUGS (8)
  1. EPIDIOLEX [Suspect]
     Active Substance: CANNABIDIOL
     Indication: TUBEROUS SCLEROSIS COMPLEX
     Dosage: 24 MG/KG, 700 MILLIGRAM, QD
     Route: 048
     Dates: start: 20180608, end: 20180610
  2. EPIDIOLEX [Suspect]
     Active Substance: CANNABIDIOL
     Dosage: 10 MG/KG, 291 MILLIGRAM, QD
     Route: 048
     Dates: start: 20180718, end: 2018
  3. SABRIL [Concomitant]
     Active Substance: VIGABATRIN
     Indication: EPILEPSY
     Dosage: 3000 MILLIGRAM (3X1000MG)
     Route: 065
     Dates: start: 200803
  4. CLOBAZAM. [Suspect]
     Active Substance: CLOBAZAM
     Indication: EPILEPSY
     Dosage: 12.5 MILLIGRAM, QD (5 MG AM, 7.5 MG PM)
     Route: 065
     Dates: start: 201705, end: 20180817
  5. VALPROIC ACID. [Concomitant]
     Active Substance: VALPROIC ACID
     Indication: EPILEPSY
     Dosage: 1100 MILLIGRAM QD (500MG AM, 600MG PM)
     Route: 065
     Dates: start: 200812
  6. EPIDIOLEX [Suspect]
     Active Substance: CANNABIDIOL
     Dosage: 15 MG/KG, 436.5 MILLIGRAM, QD
     Route: 048
     Dates: start: 20180712, end: 20180718
  7. EPIDIOLEX [Suspect]
     Active Substance: CANNABIDIOL
     Dosage: 12.4 MG/KG, 360 MILLIGRAM, QD
     Route: 048
     Dates: start: 20180610
  8. TOPIRAMATE. [Concomitant]
     Active Substance: TOPIRAMATE
     Indication: EPILEPSY
     Dosage: 125 MG AM, 150 MG PM
     Route: 065
     Dates: start: 200905

REACTIONS (1)
  - Ataxia [Recovered/Resolved]

NARRATIVE: CASE EVENT DATE: 20180618
